FAERS Safety Report 10916600 (Version 2)
Quarter: 2015Q2

REPORT INFORMATION
  Report Type: Spontaneous
  Country: US (occurrence: US)
  Receive Date: 20150316
  Receipt Date: 20150524
  Transmission Date: 20150821
  Serious: No
  Sender: FDA-Public Use
  Company Number: US-JNJFOC-20140104183

PATIENT
  Age: 82 Year
  Sex: Male
  Weight: 81.65 kg

DRUGS (11)
  1. ZYTIGA [Suspect]
     Active Substance: ABIRATERONE ACETATE
     Indication: PROSTATE CANCER
     Route: 048
     Dates: start: 201309, end: 201310
  2. LUPRON [Concomitant]
     Active Substance: LEUPROLIDE ACETATE
     Dosage: ONCE EVERY 3-4 MONTHS
     Route: 030
     Dates: start: 2008
  3. RAPAFLO [Concomitant]
     Active Substance: SILODOSIN
     Indication: MUSCLE RELAXANT THERAPY
     Dosage: ONCE EVERY 3-4 MONTHS
     Route: 048
     Dates: start: 2012
  4. ZYTIGA [Suspect]
     Active Substance: ABIRATERONE ACETATE
     Indication: PROSTATE CANCER
     Dosage: 250 MG TABLETS X 4
     Route: 048
     Dates: start: 20131104
  5. PROSCAR [Concomitant]
     Active Substance: FINASTERIDE
     Indication: PROSTATOMEGALY
     Dosage: ONCE EVERY 3-4 MONTHS
     Route: 048
     Dates: start: 2006
  6. ATENOLOL. [Concomitant]
     Active Substance: ATENOLOL
     Indication: HYPERTENSION
     Route: 048
     Dates: start: 2011
  7. WARFARIN [Concomitant]
     Active Substance: WARFARIN
     Indication: PULMONARY EMBOLISM
     Dosage: ONCE EVERY 3-4 MONTHS
     Route: 048
     Dates: start: 201203
  8. ZYTIGA [Suspect]
     Active Substance: ABIRATERONE ACETATE
     Indication: PROSTATE CANCER
     Dosage: 250 MG TABLETS X 2
     Route: 048
     Dates: start: 201310, end: 201311
  9. LOSARTAN POTASSIUM. [Concomitant]
     Active Substance: LOSARTAN POTASSIUM
     Indication: HYPERTENSION
     Route: 048
     Dates: start: 2011
  10. XGEVA [Concomitant]
     Active Substance: DENOSUMAB
     Indication: BONE DISORDER
     Dosage: ONCE EVERY 3-4 MONTHS
     Route: 058
     Dates: start: 201304
  11. CASODEX [Concomitant]
     Active Substance: BICALUTAMIDE
     Dosage: ONCE EVERY 3-4 MONTHS
     Route: 048
     Dates: start: 2012

REACTIONS (6)
  - Prostatic specific antigen increased [Not Recovered/Not Resolved]
  - Drug prescribing error [Unknown]
  - Fatigue [Not Recovered/Not Resolved]
  - Incorrect dose administered [Unknown]
  - Nuclear magnetic resonance imaging abnormal [Unknown]
  - Nervousness [Unknown]

NARRATIVE: CASE EVENT DATE: 201309
